FAERS Safety Report 11137137 (Version 1)
Quarter: 2015Q2

REPORT INFORMATION
  Report Type: Spontaneous
  Country: US (occurrence: US)
  Receive Date: 20150526
  Receipt Date: 20150526
  Transmission Date: 20150821
  Serious: No
  Sender: FDA-Public Use
  Company Number: US-MALLINCKRODT-T201501229

PATIENT
  Age: 33 Year
  Sex: Female

DRUGS (4)
  1. PLAQUENIL [Concomitant]
     Active Substance: HYDROXYCHLOROQUINE SULFATE
     Dosage: UNK
  2. H.P. ACTHAR [Suspect]
     Active Substance: CORTICOTROPIN
     Indication: SYSTEMIC LUPUS ERYTHEMATOSUS
     Dosage: 80 U, TWICE PER WEEK
     Route: 065
     Dates: start: 20150119, end: 20150319
  3. XARELTO [Concomitant]
     Active Substance: RIVAROXABAN
     Indication: ANTICOAGULANT THERAPY
     Dosage: UNK
  4. METOPROLOL [Concomitant]
     Active Substance: METOPROLOL
     Indication: HEART RATE INCREASED
     Dosage: UNK
     Dates: start: 201411

REACTIONS (8)
  - Swelling face [Recovering/Resolving]
  - Dizziness [Recovered/Resolved]
  - Vision blurred [Recovered/Resolved]
  - Red blood cell sedimentation rate increased [Unknown]
  - Limb discomfort [Recovering/Resolving]
  - Snoring [Recovered/Resolved]
  - Fatigue [Recovering/Resolving]
  - Ear discomfort [Not Recovered/Not Resolved]

NARRATIVE: CASE EVENT DATE: 201502
